FAERS Safety Report 8481328-5 (Version None)
Quarter: 2012Q3

REPORT INFORMATION
  Report Type: 
  Country: None (occurrence: None)
  Receive Date: 20120702
  Receipt Date: 20120622
  Transmission Date: 20120928
  Serious: Yes (Other)
  Sender: FDA-Public Use
  Company Number: US-JNJFOC-20120600693

PATIENT
  Sex: Female
  Weight: 59.88 kg

DRUGS (11)
  1. VITAMIN D [Concomitant]
     Route: 065
  2. REMICADE [Suspect]
     Indication: RHEUMATOID ARTHRITIS
     Dosage: 200- 300 MG
     Route: 042
     Dates: start: 20090515
  3. DIOVAN [Concomitant]
     Indication: BLOOD PRESSURE
     Route: 065
  4. PLAQUENIL [Concomitant]
     Indication: RHEUMATOID ARTHRITIS
     Route: 065
  5. REMICADE [Suspect]
     Route: 042
     Dates: start: 20100101, end: 20110801
  6. ASCORBIC ACID [Concomitant]
     Route: 065
  7. CALCIUM [Concomitant]
     Route: 065
  8. NORVASC [Concomitant]
     Indication: BLOOD PRESSURE
     Route: 065
  9. METOPROLOL TARTRATE [Concomitant]
     Indication: BLOOD PRESSURE
     Route: 065
  10. TRAMADOL HCL [Concomitant]
     Indication: PAIN
     Route: 065
  11. VITAMIN B COMPLEX CAP [Concomitant]
     Route: 065

REACTIONS (1)
  - LYMPHOMA [None]
